FAERS Safety Report 6202249-4 (Version None)
Quarter: 2009Q2

REPORT INFORMATION
  Report Type: 
  Country: None (occurrence: None)
  Receive Date: 20090526
  Receipt Date: 20090519
  Transmission Date: 20091009
  Serious: Yes (Other)
  Sender: FDA-Public Use
  Company Number: US-MERCK-0905USA01454

PATIENT
  Age: 5 Year
  Sex: Male

DRUGS (3)
  1. SINGULAIR [Suspect]
     Indication: ASTHMA
     Route: 048
     Dates: start: 20090504, end: 20090505
  2. ALBUTEROL [Concomitant]
     Indication: ASTHMA
     Route: 065
  3. ALBUTEROL [Concomitant]
     Route: 065

REACTIONS (4)
  - BLINDNESS [None]
  - EYE IRRITATION [None]
  - EYE PAIN [None]
  - MYDRIASIS [None]
